FAERS Safety Report 15570730 (Version 2)
Quarter: 2018Q4

REPORT INFORMATION
  Report Type: Spontaneous
  Country: US (occurrence: US)
  Receive Date: 20181031
  Receipt Date: 20181108
  Transmission Date: 20190205
  Serious: Yes (Other)
  Sender: FDA-Public Use
  Company Number: US-IMPAX LABORATORIES, LLC-2018-IPXL-03588

PATIENT
  Age: 76 Year
  Sex: Female

DRUGS (1)
  1. RYTARY [Suspect]
     Active Substance: CARBIDOPA\LEVODOPA
     Indication: PRODUCT USED FOR UNKNOWN INDICATION
     Dosage: 23.75/95 MG, TEN CAPSULES A DAY (3 MORNING, 3 AT LUNCH AND 4 BEFORE DINNER)
     Route: 065

REACTIONS (2)
  - Internal haemorrhage [Recovered/Resolved]
  - Anal incontinence [Recovered/Resolved]
